FAERS Safety Report 9961806 (Version 2)
Quarter: 2014Q1

REPORT INFORMATION
  Report Type: Report from Study
  Country: US (occurrence: US)
  Receive Date: 20140305
  Receipt Date: 20140305
  Transmission Date: 20141002
  Serious: No
  Sender: FDA-Public Use
  Company Number: US-ABBVIE-12P-163-0933416-00

PATIENT
  Age: 55 Year
  Sex: Female
  Weight: 88.53 kg

DRUGS (16)
  1. HUMIRA 40 MG/0.8 ML PEN [Suspect]
     Indication: RHEUMATOID ARTHRITIS
     Dates: start: 20110831, end: 201204
  2. HUMIRA 40 MG/0.8 ML PEN [Suspect]
     Dates: start: 2012, end: 201305
  3. HUMIRA 40 MG/0.8 ML PEN [Suspect]
     Dates: start: 201305
  4. HYDROCHLOROTHIAZIDE [Suspect]
     Indication: ANXIETY
     Dates: start: 201204
  5. ZITHROMAX [Suspect]
     Indication: BRONCHITIS
     Dates: start: 2012, end: 2012
  6. SULINDAC [Suspect]
     Indication: RHEUMATOID ARTHRITIS
     Dosage: TWICE DAILY
     Dates: end: 2012
  7. CIPROFLOXACIN [Suspect]
     Indication: CHROMATURIA
     Dates: start: 2012, end: 2012
  8. ARAVA [Concomitant]
     Indication: RHEUMATOID ARTHRITIS
  9. ALBUTEROL [Concomitant]
     Indication: BRONCHITIS
     Dosage: 2 PUFFS EVERY 4-6 HOURS
  10. NASONEX [Concomitant]
     Indication: SINUSITIS
     Dosage: ONE SQUIRT EACH NOSTRIL DAILY
  11. XANAX [Concomitant]
     Indication: ANXIETY
     Dosage: 1/2-1 TABLET
  12. HCTZ [Concomitant]
     Indication: HYPERTENSION
     Dosage: DAILY
  13. TRAMADOL [Concomitant]
     Indication: PAIN
  14. HYDROCHLOROTHIAZIDE W/METOPROLOL [Concomitant]
     Indication: CARDIAC DISORDER
  15. PREDNISONE [Concomitant]
     Indication: RHEUMATOID ARTHRITIS
  16. PIROXICAM [Concomitant]
     Indication: RHEUMATOID ARTHRITIS

REACTIONS (15)
  - Anxiety [Not Recovered/Not Resolved]
  - Bronchitis [Recovered/Resolved]
  - Sinusitis [Not Recovered/Not Resolved]
  - Hypertension [Not Recovered/Not Resolved]
  - Joint stiffness [Not Recovered/Not Resolved]
  - Joint swelling [Unknown]
  - Arthralgia [Not Recovered/Not Resolved]
  - Haemorrhage [Not Recovered/Not Resolved]
  - Chest pain [Not Recovered/Not Resolved]
  - Wrong technique in drug usage process [Recovering/Resolving]
  - Incorrect dose administered [Recovering/Resolving]
  - Drug ineffective [Recovered/Resolved]
  - Chromaturia [Recovered/Resolved]
  - Gait disturbance [Unknown]
  - Rash macular [Not Recovered/Not Resolved]
